FAERS Safety Report 13943650 (Version 1)
Quarter: 2017Q3

REPORT INFORMATION
  Report Type: Spontaneous
  Country: US (occurrence: US)
  Receive Date: 20170907
  Receipt Date: 20170907
  Transmission Date: 20171128
  Serious: Yes (Other)
  Sender: FDA-Public Use
  Company Number: US-ROCHE-1491563

PATIENT
  Age: 53 Year
  Sex: Female

DRUGS (1)
  1. RITUXAN [Suspect]
     Active Substance: RITUXIMAB
     Indication: RHEUMATOID ARTHRITIS
     Dosage: AS DIRECTED
     Route: 042
     Dates: start: 201402

REACTIONS (2)
  - Dyspnoea [Unknown]
  - Hypertension [Unknown]

NARRATIVE: CASE EVENT DATE: 20141104
